FAERS Safety Report 20585457 (Version 1)
Quarter: 2022Q1

REPORT INFORMATION
  Report Type: Spontaneous
  Country: TW (occurrence: TW)
  Receive Date: 20220312
  Receipt Date: 20220312
  Transmission Date: 20220423
  Serious: Yes (Death, Hospitalization, Other)
  Sender: FDA-Public Use
  Company Number: TW-PBT-004394

PATIENT
  Age: 59 Year
  Sex: Male

DRUGS (2)
  1. TACROLIMUS [Suspect]
     Active Substance: TACROLIMUS
     Indication: Prophylaxis against transplant rejection
     Route: 048
  2. TACROLIMUS [Suspect]
     Active Substance: TACROLIMUS
     Indication: Prophylaxis against transplant rejection
     Route: 048

REACTIONS (7)
  - Hepatitis [Unknown]
  - Tachypnoea [Unknown]
  - Pleural effusion [Unknown]
  - Haematemesis [Unknown]
  - Primary effusion lymphoma [Unknown]
  - Sepsis [Fatal]
  - Gastric ulcer [Unknown]
